FAERS Safety Report 17883176 (Version 1)
Quarter: 2020Q2

REPORT INFORMATION
  Report Type: Spontaneous
  Country: DK (occurrence: DK)
  Receive Date: 20200611
  Receipt Date: 20200611
  Transmission Date: 20200714
  Serious: Yes (Other)
  Sender: FDA-Public Use
  Company Number: DK-ROCHE-2614280

PATIENT
  Age: 62 Year
  Sex: Male

DRUGS (5)
  1. PARACETAMOL [Concomitant]
     Active Substance: ACETAMINOPHEN
     Indication: PAIN
     Dosage: STYRKE: 500 MG
     Route: 048
     Dates: start: 20190110
  2. KODIPAR [Concomitant]
     Indication: PAIN
     Dosage: STYRKE: 30,6 + 500 MG?DOSIS: 1 TABL. EFTER BEHOV, MAX 3X DGL.
     Route: 048
     Dates: start: 20180508
  3. PEGASYS [Suspect]
     Active Substance: PEGINTERFERON ALFA-2A
     Indication: MYELOPROLIFERATIVE NEOPLASM
     Route: 058
     Dates: start: 20180315, end: 20200123
  4. PANTOPRAZOLE [Concomitant]
     Active Substance: PANTOPRAZOLE
     Indication: GASTROOESOPHAGEAL REFLUX DISEASE
     Dosage: STYRKE: 40 MG
     Route: 048
     Dates: start: 20190905
  5. XARELTO [Concomitant]
     Active Substance: RIVAROXABAN
     Indication: THROMBOSIS PROPHYLAXIS
     Dosage: STYRKE: 20 MG
     Route: 048
     Dates: start: 20180516

REACTIONS (3)
  - Smooth muscle antibody positive [Unknown]
  - Alanine aminotransferase increased [Unknown]
  - Autoimmune hepatitis [Unknown]
